FAERS Safety Report 24428365 (Version 1)
Quarter: 2024Q4

REPORT INFORMATION
  Report Type: Report from Study
  Country: CA (occurrence: CA)
  Receive Date: 20241011
  Receipt Date: 20241011
  Transmission Date: 20250114
  Serious: No
  Sender: ROCHE
  Company Number: CA-ROCHE-10000104076

PATIENT
  Sex: Female

DRUGS (1)
  1. OCREVUS [Suspect]
     Active Substance: OCRELIZUMAB
     Indication: Relapsing-remitting multiple sclerosis
     Dosage: 300 MG AT DAY 0 AND 14, THEN 600 MG EVERY 6 MONTH.
     Route: 042
     Dates: start: 20200206

REACTIONS (5)
  - COVID-19 [Recovered/Resolved]
  - Muscular weakness [Recovering/Resolving]
  - Fall [Unknown]
  - Rib fracture [Recovering/Resolving]
  - Skin laceration [Recovering/Resolving]
